FAERS Safety Report 15103183 (Version 1)
Quarter: 2018Q3

REPORT INFORMATION
  Report Type: Spontaneous
  Country: CN (occurrence: CN)
  Receive Date: 20180703
  Receipt Date: 20180703
  Transmission Date: 20181010
  Serious: Yes (Other)
  Sender: FDA-Public Use
  Company Number: CN-ROCHE-2148418

PATIENT
  Age: 76 Year
  Sex: Female
  Weight: 72 kg

DRUGS (2)
  1. SODIUM CHLORIDE. [Concomitant]
     Active Substance: SODIUM CHLORIDE
     Dosage: INJECTION
     Route: 041
     Dates: start: 20180410, end: 20180410
  2. HERCEPTIN [Suspect]
     Active Substance: TRASTUZUMAB
     Indication: CANCER SURGERY
     Dosage: POWDER INJECTION
     Route: 041
     Dates: start: 20180410, end: 20180410

REACTIONS (2)
  - Seizure [Recovering/Resolving]
  - Hypoaesthesia [Recovering/Resolving]

NARRATIVE: CASE EVENT DATE: 20180411
